FAERS Safety Report 9862625 (Version 3)
Quarter: 2014Q1

REPORT INFORMATION
  Report Type: Spontaneous
  Country: JP (occurrence: None)
  Receive Date: 20140130
  Receipt Date: 20140214
  Transmission Date: 20141002
  Serious: Yes (Death, Life-Threatening)
  Sender: FDA-Public Use
  Company Number: JP-014511

PATIENT
  Age: 69 Year
  Sex: Male

DRUGS (13)
  1. DEGARELIX [Suspect]
     Indication: PROSTATE CANCER
     Dosage: (SUBCUTANEOUS)
     Route: 058
     Dates: start: 20130930, end: 20131122
  2. PRECIPITATED CALCIUM CARBONATE [Concomitant]
  3. CALONAL [Concomitant]
  4. CASODEX [Concomitant]
  5. FLIVAS [Concomitant]
  6. TRAMAL [Concomitant]
  7. OXYCONTIN [Concomitant]
  8. UFT [Concomitant]
  9. RINDERON [Concomitant]
  10. OXYCODONE HYDROCHLORIDE [Concomitant]
  11. DENOSUMAB [Concomitant]
  12. TRAMAL [Concomitant]
  13. OXYCONTIN [Concomitant]

REACTIONS (8)
  - Death [None]
  - Metastases to bone [None]
  - Metastases to lymph nodes [None]
  - Hydronephrosis [None]
  - Liver disorder [None]
  - Spinal cord injury [None]
  - Paralysis [None]
  - Malignant neoplasm progression [None]
